FAERS Safety Report 25234262 (Version 2)
Quarter: 2025Q2

REPORT INFORMATION
  Report Type: Report from Study
  Country: US (occurrence: US)
  Receive Date: 20250424
  Receipt Date: 20250501
  Transmission Date: 20250717
  Serious: Yes (Hospitalization, Other)
  Sender: INSMED
  Company Number: US-INSMED, INC.-2024-03698-US

PATIENT
  Sex: Male
  Weight: 60 kg

DRUGS (4)
  1. ARIKAYCE [Suspect]
     Active Substance: AMIKACIN
     Indication: Mycobacterium avium complex infection
     Dosage: 590 MILLIGRAM, QD
     Route: 055
     Dates: start: 20240911
  2. ALBUTEROL [Suspect]
     Active Substance: ALBUTEROL
     Indication: Cough
     Route: 065
  3. ALBUTEROL [Suspect]
     Active Substance: ALBUTEROL
     Indication: Dyspnoea
  4. UNSPECIFIED INGREDIENT [Concomitant]
     Active Substance: UNSPECIFIED INGREDIENT
     Indication: Product used for unknown indication
     Route: 065

REACTIONS (24)
  - Pneumonia legionella [Unknown]
  - Hospitalisation [Unknown]
  - Deafness [Not Recovered/Not Resolved]
  - Dry skin [Unknown]
  - Tremor [Unknown]
  - Agitation [Unknown]
  - Feeling jittery [Unknown]
  - Sinus congestion [Unknown]
  - Insomnia [Recovering/Resolving]
  - Sputum discoloured [Unknown]
  - Palpitations [Unknown]
  - Cough [Recovered/Resolved]
  - Cough [Recovering/Resolving]
  - Dysgeusia [Recovered/Resolved]
  - Headache [Unknown]
  - Colonoscopy [Unknown]
  - Endoscopy [Unknown]
  - Ototoxicity [Not Recovered/Not Resolved]
  - Rash pruritic [Not Recovered/Not Resolved]
  - Hypoacusis [Not Recovered/Not Resolved]
  - Dyspnoea [Not Recovered/Not Resolved]
  - Wrong technique in product usage process [Unknown]
  - Overdose [Unknown]
  - Therapy interrupted [Unknown]

NARRATIVE: CASE EVENT DATE: 20240101
